FAERS Safety Report 11698373 (Version 1)
Quarter: 2015Q4

REPORT INFORMATION
  Report Type: Spontaneous
  Country: US (occurrence: US)
  Receive Date: 20151104
  Receipt Date: 20151104
  Transmission Date: 20160304
  Serious: Yes (Other)
  Sender: FDA-Public Use
  Company Number: US-JNJFOC-20151019792

PATIENT
  Age: 59 Year
  Sex: Male
  Weight: 61.24 kg

DRUGS (1)
  1. INTELENCE [Suspect]
     Active Substance: ETRAVIRINE
     Indication: HIV INFECTION
     Route: 048
     Dates: start: 20151023

REACTIONS (3)
  - Vomiting [Unknown]
  - Nausea [Unknown]
  - Poisoning [Unknown]

NARRATIVE: CASE EVENT DATE: 20151023
